FAERS Safety Report 18422210 (Version 3)
Quarter: 2020Q4

REPORT INFORMATION
  Report Type: Spontaneous
  Country: FR (occurrence: FR)
  Receive Date: 20201023
  Receipt Date: 20201027
  Transmission Date: 20210114
  Serious: Yes (Life-Threatening, Other)
  Sender: FDA-Public Use
  Company Number: FR-CELGENEUS-FRA-20200904918

PATIENT
  Age: 71 Year
  Sex: Male

DRUGS (4)
  1. LENALIDOMIDE [Suspect]
     Active Substance: LENALIDOMIDE
     Indication: BLASTIC PLASMACYTOID DENDRITIC CELL NEOPLASIA
     Dosage: 25 MILLIGRAM
     Route: 048
  2. DEXAMETHASONE. [Suspect]
     Active Substance: DEXAMETHASONE
     Indication: BLASTIC PLASMACYTOID DENDRITIC CELL NEOPLASIA
     Dosage: 40 MILLIGRAM
     Route: 048
  3. LENALIDOMIDE [Suspect]
     Active Substance: LENALIDOMIDE
     Indication: OFF LABEL USE
     Dosage: 10 MILLIGRAM
     Route: 048
  4. BORTEZOMIB. [Suspect]
     Active Substance: BORTEZOMIB
     Indication: BLASTIC PLASMACYTOID DENDRITIC CELL NEOPLASIA
     Dosage: 1.4 MILLIGRAM/SQ. METER
     Route: 041

REACTIONS (3)
  - Tumour lysis syndrome [Recovered/Resolved]
  - Neuropathy peripheral [Recovering/Resolving]
  - Disseminated intravascular coagulation [Recovered/Resolved]
